FAERS Safety Report 6204783-X (Version None)
Quarter: 2009Q2

REPORT INFORMATION
  Report Type: 
  Country: None (occurrence: None)
  Receive Date: 20090527
  Receipt Date: 20090515
  Transmission Date: 20091009
  Serious: Yes (Hospitalization)
  Sender: FDA-Public Use
  Company Number: PT-PFIZER INC-2008054382

PATIENT
  Age: 70 Year

DRUGS (7)
  1. BLINDED *PLACEBO [Suspect]
     Indication: COLORECTAL CANCER METASTATIC
     Dosage: 37.5 MG, UNK
     Route: 048
     Dates: start: 20070813, end: 20080413
  2. BLINDED SUNITINIB MALATE [Suspect]
     Indication: COLORECTAL CANCER METASTATIC
     Dosage: 37.5 MG, UNK
     Route: 048
     Dates: start: 20070813, end: 20080413
  3. IRINOTECAN HCL [Suspect]
     Indication: COLORECTAL CANCER METASTATIC
     Dosage: 315 MG, UNK
     Route: 042
     Dates: start: 20070813, end: 20080319
  4. FLUOROURACIL [Suspect]
     Indication: COLORECTAL CANCER METASTATIC
     Dosage: 4200 MG, UNK
     Route: 042
     Dates: start: 20070813, end: 20080319
  5. FLUOROURACIL [Suspect]
     Dosage: 700 MG, UNK
     Route: 040
     Dates: start: 20070813, end: 20080319
  6. CALCIUM FOLINATE [Suspect]
     Indication: COLORECTAL CANCER METASTATIC
     Dosage: 175 MG, UNK
     Dates: start: 20070813, end: 20071009
  7. CALCIUM FOLINATE [Suspect]
     Dosage: 350 MG, UNK
     Dates: start: 20071022, end: 20080222

REACTIONS (1)
  - EPISTAXIS [None]
